FAERS Safety Report 9109450 (Version 1)
Quarter: 2013Q1

REPORT INFORMATION
  Report Type: Spontaneous
  Country: FR (occurrence: FR)
  Receive Date: 20130222
  Receipt Date: 20130222
  Transmission Date: 20140127
  Serious: Yes (Death, Hospitalization)
  Sender: FDA-Public Use
  Company Number: PHHY2013FR017096

PATIENT
  Sex: Male

DRUGS (11)
  1. CARBAMAZEPINE [Suspect]
     Indication: NEUROPATHY PERIPHERAL
     Route: 048
  2. AMOXICILLIN+CLAVULANATE SANDOZ [Suspect]
     Dates: start: 20091216, end: 20100105
  3. PERFALGAN [Suspect]
     Route: 048
     Dates: start: 20091217, end: 20100108
  4. PLAVIX [Suspect]
     Route: 048
     Dates: end: 20091231
  5. INEXIUM [Suspect]
  6. XATRAL [Suspect]
     Route: 048
  7. IPRATROPIUM MERCK [Concomitant]
  8. TERBUTALINE [Concomitant]
  9. SEAPURON [Concomitant]
  10. RIVOTRIL [Concomitant]
  11. PRIMPERAN [Concomitant]

REACTIONS (2)
  - Death [Fatal]
  - Thrombocytopenia [Unknown]
